FAERS Safety Report 19299292 (Version 1)
Quarter: 2021Q2

REPORT INFORMATION
  Report Type: Spontaneous
  Country: US (occurrence: US)
  Receive Date: 20210525
  Receipt Date: 20210525
  Transmission Date: 20210717
  Serious: Yes (Death, Hospitalization)
  Sender: FDA-Public Use
  Company Number: US-JNJFOC-20210533814

PATIENT
  Age: 52 Year
  Sex: Female

DRUGS (1)
  1. VELETRI [Suspect]
     Active Substance: EPOPROSTENOL
     Indication: COVID-19
     Dosage: AT A RATE OF 5.9 ML/HOUR
     Route: 045

REACTIONS (6)
  - Syringe issue [Unknown]
  - Off label use [Fatal]
  - COVID-19 [Fatal]
  - Dependence on respirator [Unknown]
  - Product use issue [Fatal]
  - Product use in unapproved indication [Fatal]

NARRATIVE: CASE EVENT DATE: 202105
